FAERS Safety Report 16930721 (Version 1)
Quarter: 2019Q4

REPORT INFORMATION
  Report Type: Spontaneous
  Country: US (occurrence: US)
  Receive Date: 20191017
  Receipt Date: 20191017
  Transmission Date: 20200122
  Serious: No
  Sender: FDA-Public Use
  Company Number: US-009507513-1910USA010321

PATIENT
  Age: 36 Year
  Sex: Female

DRUGS (9)
  1. GANIRELIX ACETATE INJECTION [Suspect]
     Active Substance: GANIRELIX ACETATE
     Indication: INFERTILITY FEMALE
     Dosage: 250 MICROGRAM, QD
     Route: 058
     Dates: start: 20190809
  2. PUREGON PEN [DEVICE] [Suspect]
     Active Substance: DEVICE
  3. ESTRADIOL. [Concomitant]
     Active Substance: ESTRADIOL
  4. LEUPROLIDE [Concomitant]
     Active Substance: LEUPROLIDE
  5. AZITHROMYCIN ANHYDROUS. [Concomitant]
     Active Substance: AZITHROMYCIN ANHYDROUS
  6. MENOPUR [Concomitant]
     Active Substance: FOLLITROPIN\LUTEINIZING HORMONE
  7. ENDOMETRIN [Concomitant]
     Active Substance: PROGESTERONE
  8. PROGESTERONE. [Concomitant]
     Active Substance: PROGESTERONE
  9. FOLLISTIM AQ [Suspect]
     Active Substance: FOLLITROPIN
     Indication: INFERTILITY FEMALE
     Dosage: 75-450 UNITS, QD
     Route: 058
     Dates: start: 20190806

REACTIONS (1)
  - Rash [Unknown]

NARRATIVE: CASE EVENT DATE: 20191007
